FAERS Safety Report 9135530 (Version 1)
Quarter: 2013Q1

REPORT INFORMATION
  Report Type: Spontaneous
  Country: US (occurrence: US)
  Receive Date: 20130304
  Receipt Date: 20130304
  Transmission Date: 20140127
  Serious: Yes (Hospitalization, Other)
  Sender: FDA-Public Use
  Company Number: US-PFIZER INC-2013069304

PATIENT
  Age: 55 Year
  Sex: Male
  Weight: 71.7 kg

DRUGS (3)
  1. BENEFIX [Suspect]
     Indication: FACTOR IX DEFICIENCY
     Dosage: 25 IU/KG, MONTHLY (PREVENTATIVE)
  2. BENEFIX [Suspect]
     Dosage: 50 IU/KG, AS NEEDED (ON DEMAND)
  3. BENEFIX [Suspect]
     Dosage: 50 IU/KG, WEEKLY (PROPHYLACTIC)

REACTIONS (3)
  - Disease complication [Unknown]
  - Haemorrhage [Unknown]
  - Off label use [Unknown]
